FAERS Safety Report 5245920-3 (Version None)
Quarter: 2007Q1

REPORT INFORMATION
  Report Type: 
  Country: None (occurrence: None)
  Receive Date: 20070216
  Receipt Date: 20070131
  Transmission Date: 20070707
  Serious: Yes (Other)
  Sender: FDA-Public Use
  Company Number: DSA_29309_2007

PATIENT
  Age: 76 Year
  Sex: Female

DRUGS (5)
  1. ENALAPRIL MALEATE [Suspect]
     Indication: HYPERTENSION
     Dosage: 20 MG Q DAY UNK
  2. ENALAPRIL MALEATE [Suspect]
     Indication: HYPERTENSION
     Dosage: DF UNK UNK
  3. CHLORDIAZEPOXIDE [Concomitant]
  4. GLIMEPIRIDE [Concomitant]
  5. LACTITOL [Concomitant]

REACTIONS (1)
  - HALLUCINATION, VISUAL [None]
